FAERS Safety Report 9464648 (Version 16)
Quarter: 2025Q1

REPORT INFORMATION
  Report Type: Spontaneous
  Country: US (occurrence: US)
  Receive Date: 20130819
  Receipt Date: 20250314
  Transmission Date: 20250408
  Serious: No
  Sender: PFIZER
  Company Number: US-BRISTOL-MYERS SQUIBB COMPANY-BMS-2020-113318

PATIENT
  Age: 64 Year
  Sex: Female

DRUGS (17)
  1. ELIQUIS [Suspect]
     Active Substance: APIXABAN
  2. AMLODIPINE BESYLATE [Suspect]
     Active Substance: AMLODIPINE BESYLATE
  3. MORPHINE SULFATE [Suspect]
     Active Substance: MORPHINE SULFATE
  4. QUINAPRIL [Suspect]
     Active Substance: QUINAPRIL
  5. CODEINE [Suspect]
     Active Substance: CODEINE
  6. ISOSORBIDE DINITRATE [Suspect]
     Active Substance: ISOSORBIDE DINITRATE
  7. PRADAXA [Suspect]
     Active Substance: DABIGATRAN ETEXILATE MESYLATE
  8. TRABECTEDIN [Suspect]
     Active Substance: TRABECTEDIN
  9. XARELTO [Suspect]
     Active Substance: RIVAROXABAN
  10. DOXAZOSIN MESYLATE [Suspect]
     Active Substance: DOXAZOSIN MESYLATE
  11. FLUOROURACIL [Suspect]
     Active Substance: FLUOROURACIL
  12. INFLUENZA VIRUS VACCINE [Suspect]
     Active Substance: INFLUENZA VIRUS VACCINE
     Indication: Immunisation
  13. ISORDIL [Suspect]
     Active Substance: ISOSORBIDE DINITRATE
  14. THIMEROSAL [Suspect]
     Active Substance: THIMEROSAL
  15. TRAMADOL [Suspect]
     Active Substance: TRAMADOL
  16. VASOTEC [Suspect]
     Active Substance: ENALAPRIL MALEATE
  17. ZESTRIL [Suspect]
     Active Substance: LISINOPRIL

REACTIONS (1)
  - Drug hypersensitivity [Unknown]
